FAERS Safety Report 17049093 (Version 1)
Quarter: 2019Q4

REPORT INFORMATION
  Report Type: Spontaneous
  Country: US (occurrence: US)
  Receive Date: 20191119
  Receipt Date: 20191119
  Transmission Date: 20200122
  Serious: No
  Sender: FDA-Public Use
  Company Number: US-ASTRAZENECA-2019SF52285

PATIENT
  Age: 68 Year
  Sex: Female

DRUGS (1)
  1. LOKELMA [Suspect]
     Active Substance: SODIUM ZIRCONIUM CYCLOSILICATE
     Indication: HYPERKALAEMIA
     Dosage: 10G, ADMINISTERED 1-2 TIMES PER WEEK
     Route: 048
     Dates: start: 20190726, end: 20191003

REACTIONS (3)
  - Diarrhoea [Unknown]
  - Atrophic vulvovaginitis [Unknown]
  - Dermatitis diaper [Unknown]
